FAERS Safety Report 15955425 (Version 3)
Quarter: 2019Q2

REPORT INFORMATION
  Report Type: Report from Study
  Country: None (occurrence: US)
  Receive Date: 20190213
  Receipt Date: 20190617
  Transmission Date: 20190711
  Serious: Yes (Hospitalization, Other)
  Sender: FDA-Public Use
  Company Number: US-ABBVIE-19K-163-2660028-00

PATIENT
  Age: 43 Year
  Sex: Female
  Weight: 103.06 kg

DRUGS (5)
  1. WELLBUTRIN [Concomitant]
     Active Substance: BUPROPION HYDROCHLORIDE
     Indication: DEPRESSION
  2. FUROSEMIDE. [Concomitant]
     Active Substance: FUROSEMIDE
     Indication: FLUID RETENTION
  3. HUMIRA [Suspect]
     Active Substance: ADALIMUMAB
     Indication: PSORIASIS
     Route: 058
     Dates: end: 201812
  4. LEVETIRACETAM. [Concomitant]
     Active Substance: LEVETIRACETAM
     Indication: SEIZURE
  5. RIZATRIPTAN. [Concomitant]
     Active Substance: RIZATRIPTAN
     Indication: MIGRAINE

REACTIONS (11)
  - Procedural complication [Unknown]
  - Bladder disorder [Unknown]
  - Benign neoplasm [Recovered/Resolved]
  - Urethral injury [Unknown]
  - Post procedural infection [Unknown]
  - Urinary bladder haemorrhage [Recovered/Resolved]
  - Seizure [Unknown]
  - Incision site abscess [Unknown]
  - Drug hypersensitivity [Unknown]
  - Incision site pain [Unknown]
  - Urinary bladder haemorrhage [Recovered/Resolved]

NARRATIVE: CASE EVENT DATE: 2018
